FAERS Safety Report 14618914 (Version 1)
Quarter: 2018Q1

REPORT INFORMATION
  Report Type: Spontaneous
  Country: IT (occurrence: IT)
  Receive Date: 20180309
  Receipt Date: 20180309
  Transmission Date: 20180509
  Serious: Yes (Other)
  Sender: FDA-Public Use
  Company Number: IT-ENDO PHARMACEUTICALS INC-2018-021101

PATIENT
  Age: 50 Year
  Sex: Male

DRUGS (1)
  1. XIAPEX [Suspect]
     Active Substance: COLLAGENASE CLOSTRIDIUM HISTOLYTICUM
     Indication: PEYRONIE^S DISEASE
     Dosage: UNK UNKNOWN, UNKNOWN
     Route: 026
     Dates: start: 20180214

REACTIONS (3)
  - Penile necrosis [Recovering/Resolving]
  - Penile pain [Unknown]
  - Penile haematoma [Recovered/Resolved]

NARRATIVE: CASE EVENT DATE: 20180216
